FAERS Safety Report 9269793 (Version 4)
Quarter: 2013Q3

REPORT INFORMATION
  Report Type: Report from Study
  Country: US (occurrence: US)
  Receive Date: 20130503
  Receipt Date: 20130715
  Transmission Date: 20140515
  Serious: Yes (Hospitalization)
  Sender: FDA-Public Use
  Company Number: US-JNJFOC-20130416428

PATIENT
  Age: 15 Year
  Sex: Male
  Weight: 36.8 kg

DRUGS (11)
  1. REMICADE [Suspect]
     Indication: INFLAMMATORY BOWEL DISEASE
     Route: 042
     Dates: start: 20130403
  2. REMICADE [Suspect]
     Indication: INFLAMMATORY BOWEL DISEASE
     Route: 042
     Dates: start: 20120529
  3. REMICADE [Suspect]
     Indication: INFLAMMATORY BOWEL DISEASE
     Route: 042
     Dates: start: 201303
  4. REMICADE [Suspect]
     Indication: INFLAMMATORY BOWEL DISEASE
     Route: 042
     Dates: start: 201301
  5. DILAUDID [Concomitant]
     Route: 065
  6. AMITRIPTYLINE [Concomitant]
     Route: 065
  7. DIAZEPAM [Concomitant]
     Route: 065
  8. HYOSCYAMINE [Concomitant]
     Route: 065
  9. RIFAXIMIN [Concomitant]
     Route: 065
  10. PREDNISONE [Concomitant]
     Route: 065
  11. TYLENOL EXTRA STRENGTH [Concomitant]
     Route: 065

REACTIONS (1)
  - Gastrointestinal stoma complication [Recovered/Resolved]
